FAERS Safety Report 6227293-2 (Version None)
Quarter: 2009Q2

REPORT INFORMATION
  Report Type: 
  Country: None (occurrence: None)
  Receive Date: 20090612
  Receipt Date: 20090609
  Transmission Date: 20091009
  Serious: Yes (Hospitalization)
  Sender: FDA-Public Use
  Company Number: AU-BRISTOL-MYERS SQUIBB COMPANY-14657894

PATIENT
  Age: 33 Year
  Sex: Male

DRUGS (7)
  1. CISPLATIN [Suspect]
     Dates: start: 20070813
  2. ETOPOSIDE [Suspect]
     Dates: start: 20070813
  3. ATAZANAVIR SULFATE [Suspect]
  4. BLEOMYCIN SULFATE [Suspect]
     Dates: start: 20070813
  5. ABACAVIR [Suspect]
     Dosage: 1 DF = 1 DOSE UNSPECIFIED 1 TIME
  6. NEULASTA [Suspect]
     Dosage: INJECTION
     Route: 058
     Dates: start: 20070819
  7. RITONAVIR [Suspect]

REACTIONS (1)
  - FEBRILE NEUTROPENIA [None]
